FAERS Safety Report 6961081-4 (Version None)
Quarter: 2010Q3

REPORT INFORMATION
  Report Type: 
  Country: None (occurrence: None)
  Receive Date: 20100901
  Receipt Date: 20100826
  Transmission Date: 20110219
  Serious: Yes (Other)
  Sender: FDA-Public Use
  Company Number: US-ABBOTT-10P-163-0666225-00

PATIENT
  Sex: Female

DRUGS (1)
  1. HUMIRA [Suspect]
     Indication: RHEUMATOID ARTHRITIS
     Route: 058
     Dates: start: 20090801, end: 20100201

REACTIONS (5)
  - ANXIETY [None]
  - BACK PAIN [None]
  - DEPRESSION [None]
  - URINARY TRACT INFECTION [None]
  - VICTIM OF SEXUAL ABUSE [None]
